FAERS Safety Report 7364814-0 (Version None)
Quarter: 2011Q1

REPORT INFORMATION
  Report Type: 
  Country: None (occurrence: None)
  Receive Date: 20110321
  Receipt Date: 20110309
  Transmission Date: 20110831
  Serious: Yes (Hospitalization)
  Sender: FDA-Public Use
  Company Number: PHHO2010DE08204

PATIENT
  Sex: Male
  Weight: 97 kg

DRUGS (10)
  1. CYCLOSPORINE [Suspect]
     Indication: RENAL TRANSPLANT
     Dosage: 225 MG, UNK
     Route: 048
     Dates: start: 20100319
  2. LEVOTHYROXINE SODIUM [Concomitant]
     Indication: HYPOTHYROIDISM
  3. PREDNISOLONE [Suspect]
     Indication: RENAL TRANSPLANT
     Dosage: UNK
     Route: 048
     Dates: start: 20100319
  4. PANTOZOL [Concomitant]
     Indication: PROPHYLAXIS
  5. TORSEMIDE [Concomitant]
     Indication: HYPERTENSION
  6. BELOC ZOK [Concomitant]
     Indication: HYPERTENSION
  7. MYFORTIC [Suspect]
     Indication: RENAL TRANSPLANT
     Dosage: 360 MG, BID
     Route: 048
     Dates: start: 20100319
  8. CYNT [Concomitant]
     Indication: HYPERTENSION
  9. COTRIM [Concomitant]
     Indication: PROPHYLAXIS
  10. NO TREATMENT RECEIVED [Suspect]
     Indication: RENAL TRANSPLANT
     Dosage: UNK

REACTIONS (1)
  - FEMORAL NECK FRACTURE [None]
